FAERS Safety Report 8597662-4 (Version None)
Quarter: 2012Q3

REPORT INFORMATION
  Report Type: 
  Country: None (occurrence: None)
  Receive Date: 20120803
  Receipt Date: 20120725
  Transmission Date: 20120928
  Serious: Yes (Hospitalization, Other)
  Sender: FDA-Public Use
  Company Number: AUR-APL-2012-03129

PATIENT
  Age: 68 Year
  Sex: Female
  Weight: 84 kg

DRUGS (27)
  1. OMEPRAZOLE [Concomitant]
  2. LIPITOR [Concomitant]
  3. MULTIVITAMIN (VIGRAN) [Concomitant]
  4. HYDROMORPHONE HYDROCHLORIDE [Concomitant]
  5. WELLBUTRIN [Suspect]
     Indication: ANXIETY
  6. DYAZIDE [Concomitant]
  7. SENNA-MINT WAF [Concomitant]
  8. UNKNOWN [Concomitant]
  9. DESFLURANE [Concomitant]
  10. CYMBALTA [Suspect]
     Indication: DEPRESSION
  11. CYMBALTA [Suspect]
     Indication: ANXIETY
  12. ONDANSETRON [Suspect]
     Indication: PRODUCT USED FOR UNKNOWN INDICATION
     Dosage: 4 MG
  13. OXYCODONE HCL [Concomitant]
  14. GABITRIL [Concomitant]
  15. CALCIUM TABS (CALCIUM) [Concomitant]
  16. MIDAZOLAM HCL [Concomitant]
  17. PROPOFOL [Concomitant]
  18. FENTANYL [Suspect]
     Indication: ANAESTHESIA
     Dosage: 100 MCG
  19. LEVOTHYROXINE SODIUM [Concomitant]
  20. LISINOPRIL [Concomitant]
  21. PAXIL [Suspect]
     Indication: ANXIETY
  22. PAXIL [Suspect]
     Indication: DEPRESSION
  23. FOSAMAX [Concomitant]
  24. CLONAZEPAM [Concomitant]
  25. SUCCINYLCHOLINE CHLORIDE [Concomitant]
  26. GABAPENTIN [Concomitant]
  27. FLUODRICORTISONE (FLUDROCORTISONE) [Concomitant]

REACTIONS (4)
  - OXYGEN SATURATION DECREASED [None]
  - BLOOD PRESSURE DECREASED [None]
  - SEROTONIN SYNDROME [None]
  - UNRESPONSIVE TO STIMULI [None]
